APPROVED DRUG PRODUCT: NASACORT ALLERGY 24 HOUR
Active Ingredient: TRIAMCINOLONE ACETONIDE
Strength: 0.055MG/SPRAY
Dosage Form/Route: SPRAY, METERED;NASAL
Application: N020468 | Product #002
Applicant: CHATTEM INC DBA SANOFI CONSUMER HEALTHCARE
Approved: Oct 11, 2013 | RLD: Yes | RS: Yes | Type: OTC